FAERS Safety Report 7723103-2 (Version None)
Quarter: 2011Q3

REPORT INFORMATION
  Report Type: 
  Country: None (occurrence: None)
  Receive Date: 20110901
  Receipt Date: 20110829
  Transmission Date: 20111222
  Serious: Yes (Hospitalization)
  Sender: FDA-Public Use
  Company Number: BG-AMGEN-BGRSP2011043664

PATIENT
  Age: 94 Day
  Sex: Male
  Weight: 3.3 kg

DRUGS (2)
  1. METHYLPREDNISOLONE [Concomitant]
     Dosage: 2 MG/ML
     Dates: start: 20110617, end: 20110617
  2. NPLATE [Suspect]
     Dosage: 0.15 UNK, UNK
     Route: 064
     Dates: start: 20101005, end: 20101019

REACTIONS (3)
  - JAUNDICE NEONATAL [None]
  - THROMBOCYTOPENIA [None]
  - INGUINAL HERNIA [None]
